FAERS Safety Report 20836340 (Version 1)
Quarter: 2022Q2

REPORT INFORMATION
  Report Type: Spontaneous
  Country: RU (occurrence: RU)
  Receive Date: 20220517
  Receipt Date: 20220517
  Transmission Date: 20220721
  Serious: Yes (Hospitalization, Other)
  Sender: FDA-Public Use
  Company Number: RU-BEH-2022145356

PATIENT
  Age: 2 Year
  Sex: Male
  Weight: 11 kg

DRUGS (1)
  1. PRIVIGEN [Suspect]
     Active Substance: HUMAN IMMUNOGLOBULIN G
     Indication: Immune thrombocytopenia
     Dosage: 10 GRAM, TOT
     Route: 042
     Dates: start: 20191226, end: 20191226

REACTIONS (3)
  - Headache [Recovered/Resolved]
  - Body temperature increased [Recovered/Resolved]
  - Respiratory tract infection [Recovering/Resolving]

NARRATIVE: CASE EVENT DATE: 20191227
